FAERS Safety Report 16973815 (Version 3)
Quarter: 2019Q4

REPORT INFORMATION
  Report Type: Spontaneous
  Country: JP (occurrence: JP)
  Receive Date: 20191030
  Receipt Date: 20191219
  Transmission Date: 20200122
  Serious: Yes (Hospitalization)
  Sender: FDA-Public Use
  Company Number: JP-BAYER-2019-195793

PATIENT
  Age: 52 Year
  Sex: Female

DRUGS (5)
  1. BETAFERON [Suspect]
     Active Substance: INTERFERON BETA-1B
     Indication: MULTIPLE SCLEROSIS RELAPSE PROPHYLAXIS
     Dosage: ONCE EVERY TWO DAYS
     Route: 058
     Dates: start: 20191024
  2. LOXOPROFEN [Concomitant]
     Active Substance: LOXOPROFEN
     Dosage: DAILY DOSE 180 MG
  3. PEROSPIRONE HYDROCHLORIDE DIHYDRATE [Concomitant]
     Dosage: DAILY DOSE 2 MG
  4. PREDNISOLONE. [Suspect]
     Active Substance: PREDNISOLONE
     Dosage: DAILY DOSE 9 MG
  5. AMLODIPINE [Suspect]
     Active Substance: AMLODIPINE BESYLATE
     Dosage: DAILY DOSE 5 MG

REACTIONS (3)
  - Cardiac failure acute [Unknown]
  - Dyspnoea [Unknown]
  - Chest pain [Unknown]

NARRATIVE: CASE EVENT DATE: 20191024
